FAERS Safety Report 11209152 (Version 1)
Quarter: 2015Q2

REPORT INFORMATION
  Report Type: Spontaneous
  Country: ES (occurrence: ES)
  Receive Date: 20150622
  Receipt Date: 20150622
  Transmission Date: 20150821
  Serious: Yes (Death, Other)
  Sender: FDA-Public Use
  Company Number: PHHY2015ES072941

PATIENT
  Age: 54 Year
  Sex: Male

DRUGS (4)
  1. MEROPENEM. [Suspect]
     Active Substance: MEROPENEM
     Indication: INFECTION
     Route: 065
  2. ALBUMIN [Concomitant]
     Active Substance: ALBUMIN (HUMAN)
     Indication: INFECTION
     Route: 065
  3. VANCOMYCIN [Suspect]
     Active Substance: VANCOMYCIN
     Indication: INFECTION
     Route: 065
  4. TERLIPRESSIN [Concomitant]
     Active Substance: TERLIPRESSIN
     Indication: INFECTION
     Route: 065

REACTIONS (5)
  - Nephropathy toxic [Unknown]
  - Linear IgA disease [Unknown]
  - Necrosis [Unknown]
  - Papule [Unknown]
  - Hepatorenal syndrome [Fatal]
